FAERS Safety Report 10213699 (Version 1)
Quarter: 2014Q2

REPORT INFORMATION
  Report Type: Spontaneous
  Country: US (occurrence: None)
  Receive Date: 20140602
  Receipt Date: 20140602
  Transmission Date: 20141212
  Serious: No
  Sender: FDA-Public Use
  Company Number: None

PATIENT
  Age: 49 Year
  Sex: Female
  Weight: 83.92 kg

DRUGS (1)
  1. SIMBRINZA [Suspect]
     Indication: INTRAOCULAR PRESSURE INCREASED
     Dosage: 1 DROP 2 DAY TWICE DAILY
     Dates: start: 20140530, end: 20140530

REACTIONS (11)
  - Burning sensation [None]
  - Condition aggravated [None]
  - Abnormal sensation in eye [None]
  - Foreign body sensation in eyes [None]
  - Hyperaesthesia [None]
  - Eye disorder [None]
  - Discomfort [None]
  - Reading disorder [None]
  - Sleep disorder due to general medical condition, insomnia type [None]
  - No therapeutic response [None]
  - Hyperaesthesia [None]
